FAERS Safety Report 5273673-1 (Version None)
Quarter: 2007Q1

REPORT INFORMATION
  Report Type: 
  Country: None (occurrence: None)
  Receive Date: 20070323
  Receipt Date: 20070312
  Transmission Date: 20070707
  Serious: Yes (Other)
  Sender: FDA-Public Use
  Company Number: US-SANOFI-SYNTHELABO-A03200702033

PATIENT
  Sex: Female
  Weight: 73 kg

DRUGS (10)
  1. AMBIEN [Suspect]
     Indication: INSOMNIA
     Route: 048
     Dates: start: 20050707, end: 20051204
  2. DARVOCET [Concomitant]
     Route: 048
  3. FIORICET [Concomitant]
     Route: 048
  4. VALTREX [Concomitant]
     Dosage: UNK
     Route: 048
  5. LEVSIN [Concomitant]
     Dosage: UNK
     Route: 065
  6. PRILOSEC [Concomitant]
     Dosage: UNK
     Route: 048
  7. WELLBUTRIN SR [Concomitant]
     Dosage: UNK
     Route: 048
  8. PAXIL [Concomitant]
     Dosage: UNK
     Route: 048
  9. SOMA [Concomitant]
     Route: 048
  10. VICODIN [Concomitant]
     Route: 048

REACTIONS (6)
  - AMNESIA [None]
  - CONFUSIONAL STATE [None]
  - FALL [None]
  - ROAD TRAFFIC ACCIDENT [None]
  - SKIN LACERATION [None]
  - SLEEP WALKING [None]
